FAERS Safety Report 4555928-9 (Version None)
Quarter: 2005Q1

REPORT INFORMATION
  Report Type: 
  Country: None (occurrence: None)
  Receive Date: 20050112
  Receipt Date: 20040212
  Transmission Date: 20050727
  Serious: Yes (Hospitalization)
  Sender: FDA-Public Use
  Company Number: 358797

PATIENT
  Age: 55 Year
  Sex: Female
  Weight: 77.6 kg

DRUGS (3)
  1. VESANOID [Suspect]
     Indication: DRUG USE FOR UNKNOWN INDICATION
     Dosage: 4 DOSE FORM    1 PER 12 HOUR   ORAL
     Route: 048
     Dates: start: 20040124, end: 20040213
  2. LINEZOLID (LINEZOLID) [Concomitant]
  3. LEVOXINE (LEVOTHYROXINE SODIUM) [Concomitant]

REACTIONS (1)
  - PYREXIA [None]
